FAERS Safety Report 8790490 (Version 1)
Quarter: 2012Q4

REPORT INFORMATION
  Report Type: Spontaneous
  Country: US (occurrence: None)
  Receive Date: 20120911
  Receipt Date: 20120911
  Transmission Date: 20130627
  Serious: Yes (Other)
  Sender: FDA-Public Use
  Company Number: None

PATIENT
  Age: 62 Year
  Sex: Female
  Weight: 63.5 kg

DRUGS (1)
  1. CLOPIDOGREL [Suspect]
     Indication: HYPERLIPIDEMIA
     Route: 048

REACTIONS (5)
  - Abdominal discomfort [None]
  - Product substitution issue [None]
  - Nausea [None]
  - Vomiting [None]
  - Pain [None]
